FAERS Safety Report 5313211-8 (Version None)
Quarter: 2007Q2

REPORT INFORMATION
  Report Type: 
  Country: None (occurrence: None)
  Receive Date: 20070430
  Receipt Date: 20070417
  Transmission Date: 20071010
  Serious: Yes (Hospitalization)
  Sender: FDA-Public Use
  Company Number: US-AMGEN-KDL210294

PATIENT
  Sex: Male
  Weight: 45 kg

DRUGS (15)
  1. NEUPOGEN [Suspect]
     Indication: HIV INFECTION
     Route: 058
     Dates: start: 20070205
  2. FLAGYL [Concomitant]
     Route: 065
     Dates: start: 20070203, end: 20070204
  3. VANCOMYCIN [Concomitant]
     Route: 048
     Dates: start: 20070204
  4. CASPOFUNGIN [Concomitant]
     Route: 065
  5. EPIVIR [Concomitant]
     Route: 065
     Dates: start: 20070205, end: 20070304
  6. ZIAGEN [Concomitant]
     Route: 065
     Dates: start: 20070205, end: 20070304
  7. KALETRA [Concomitant]
     Route: 065
  8. VIREAD [Concomitant]
     Route: 065
     Dates: start: 20070205, end: 20070304
  9. VALCYTET [Concomitant]
     Route: 065
     Dates: start: 20070204, end: 20070208
  10. BACTRIM [Concomitant]
     Route: 065
     Dates: start: 20070205, end: 20070208
  11. ETHAMBUTOL HYDROCHLORIDE [Concomitant]
     Route: 065
     Dates: start: 20070203
  12. ZITHROMAX [Concomitant]
     Route: 065
  13. SODIUM BICARBONATE [Concomitant]
     Route: 065
  14. FLUCONAZOLE [Concomitant]
     Route: 065
     Dates: start: 20070203, end: 20070204
  15. CANDESARTAN [Concomitant]
     Route: 065

REACTIONS (1)
  - BAND NEUTROPHIL COUNT INCREASED [None]
